FAERS Safety Report 5613565-9 (Version None)
Quarter: 2008Q1

REPORT INFORMATION
  Report Type: 
  Country: None (occurrence: None)
  Receive Date: 20080205
  Receipt Date: 20080129
  Transmission Date: 20080703
  Serious: Yes (Other)
  Sender: FDA-Public Use
  Company Number: FR-TEVA-167045ISR

PATIENT
  Sex: Female

DRUGS (3)
  1. FLUOROURACIL [Suspect]
     Indication: BREAST CANCER
     Dates: start: 20050721, end: 20051103
  2. CYCLOPHOSPHAMIDE [Suspect]
     Indication: BREAST CANCER
     Dates: start: 20050721, end: 20051103
  3. EPIRUBICIN [Suspect]
     Indication: BREAST CANCER
     Dates: start: 20050701, end: 20051103

REACTIONS (2)
  - LEUKAEMIA [None]
  - NEOPLASM MALIGNANT [None]
